FAERS Safety Report 4399878-X (Version None)
Quarter: 2004Q3

REPORT INFORMATION
  Report Type: 
  Country: None (occurrence: None)
  Receive Date: 20040714
  Receipt Date: 20040628
  Transmission Date: 20050211
  Serious: Yes (Life-Threatening, Hospitalization)
  Sender: FDA-Public Use
  Company Number: JP_040402946

PATIENT
  Age: 36 Year
  Sex: Female
  Weight: 57 kg

DRUGS (3)
  1. ZYPREXA [Suspect]
     Indication: SCHIZOPHRENIA, CATATONIC TYPE
     Dosage: 10 MG DAY
     Dates: start: 20020817
  2. AKINETON [Concomitant]
  3. MERCAZOLE (THIAMAZOLE) [Concomitant]

REACTIONS (11)
  - DEPRESSION [None]
  - DRUG TOXICITY [None]
  - HYPERGLYCAEMIA [None]
  - INCREASED APPETITE [None]
  - INSOMNIA [None]
  - MENTAL STATUS CHANGES [None]
  - OVERDOSE [None]
  - RED BLOOD CELL COUNT INCREASED [None]
  - SUICIDAL IDEATION [None]
  - SUICIDE ATTEMPT [None]
  - WEIGHT INCREASED [None]
